FAERS Safety Report 9522522 (Version 1)
Quarter: 2013Q1

REPORT INFORMATION
  Report Type: Spontaneous
  Country: US (occurrence: None)
  Receive Date: 20130305
  Receipt Date: 20130305
  Transmission Date: 20140127
  Serious: Yes (Hospitalization)
  Sender: FDA-Public Use
  Company Number: 163-21880-12063820

PATIENT
  Age: 73 Year
  Sex: Female
  Weight: 50.35 kg

DRUGS (1)
  1. REVLIMID (LENALIDOMIDE) (25 MILLIGRAM, CAPSULES) [Suspect]
     Indication: PLASMA CELL MYELOMA
     Dosage: 25 MG. 1 IN 1 D, PO
     Route: 048
     Dates: start: 201204

REACTIONS (1)
  - Tremor [None]
